FAERS Safety Report 5113592-4 (Version None)
Quarter: 2006Q3

REPORT INFORMATION
  Report Type: 
  Country: None (occurrence: None)
  Receive Date: 20060920
  Receipt Date: 20060905
  Transmission Date: 20061208
  Serious: Yes (Other)
  Sender: FDA-Public Use
  Company Number: 2006110810

PATIENT
  Age: 83 Year
  Sex: Female

DRUGS (3)
  1. LYRICA [Suspect]
     Indication: SJOGREN'S SYNDROME
     Dates: start: 20060801, end: 20060801
  2. AMITRIPTYLINE HYDROCHLORIDE [Concomitant]
  3. KETAMINE HCL [Concomitant]

REACTIONS (6)
  - ABDOMINAL PAIN UPPER [None]
  - CONDITION AGGRAVATED [None]
  - EOSINOPHILIA [None]
  - POLYNEUROPATHY [None]
  - RASH [None]
  - RENAL IMPAIRMENT [None]
